FAERS Safety Report 8884064 (Version 1)
Quarter: 2012Q4

REPORT INFORMATION
  Report Type: 
  Country: US (occurrence: US)
  Receive Date: 20121102
  Receipt Date: 20121102
  Transmission Date: 20130627
  Serious: No
  Sender: FDA-Public Use
  Company Number: US-ASTRAZENECA-2012SE27926

PATIENT
  Age: 61 Year
  Sex: Male
  Weight: 89.8 kg

DRUGS (3)
  1. CRESTOR [Suspect]
     Indication: ARTERIAL OCCLUSIVE DISEASE
     Route: 048
  2. CRESTOR [Suspect]
     Indication: ARTERIAL OCCLUSIVE DISEASE
     Dosage: DECREASE TO 5 MG
     Route: 048
  3. EIGHT DIFFERENT MEDICATIONS [Concomitant]

REACTIONS (3)
  - Nerve injury [Unknown]
  - Pain [Unknown]
  - Pain in extremity [Unknown]
